FAERS Safety Report 7424678-3 (Version None)
Quarter: 2011Q2

REPORT INFORMATION
  Report Type: 
  Country: None (occurrence: None)
  Receive Date: 20110419
  Receipt Date: 20110303
  Transmission Date: 20111010
  Serious: Yes (Other)
  Sender: FDA-Public Use
  Company Number: US-BAYER-201011761NA

PATIENT
  Age: 20 Year
  Sex: Female
  Weight: 85 kg

DRUGS (6)
  1. ACCUTANE [Concomitant]
     Indication: ACNE
     Dosage: 40 MG, QD
  2. RETIN-A MICRO [Concomitant]
  3. IBUPROFEN [Concomitant]
  4. CIPRO [Concomitant]
     Indication: ACNE
  5. PREDNISONE [Concomitant]
     Indication: ACNE
  6. YASMIN [Suspect]
     Indication: ACNE
     Dosage: UNK
     Route: 048
     Dates: start: 20041101, end: 20071001

REACTIONS (3)
  - CHOLELITHIASIS [None]
  - CHOLESTEROSIS [None]
  - CHOLECYSTITIS CHRONIC [None]
